FAERS Safety Report 22274923 (Version 1)
Quarter: 2023Q2

REPORT INFORMATION
  Report Type: Spontaneous
  Country: US (occurrence: US)
  Receive Date: 20230502
  Receipt Date: 20230502
  Transmission Date: 20230721
  Serious: No
  Sender: FDA-Public Use
  Company Number: US-RVL_Pharmaceuticals-USA-POI1255202300081

PATIENT
  Age: 53 Year
  Sex: Female

DRUGS (2)
  1. UPNEEQ [Suspect]
     Active Substance: OXYMETAZOLINE HYDROCHLORIDE
     Indication: Eyelid ptosis
     Dosage: OU
     Route: 047
     Dates: start: 20230317, end: 20230318
  2. PHENTERMINE [Concomitant]
     Active Substance: PHENTERMINE
     Indication: Product used for unknown indication
     Route: 048

REACTIONS (4)
  - Dizziness [Recovering/Resolving]
  - Vision blurred [Recovering/Resolving]
  - Eyelid oedema [Unknown]
  - Eyelid pain [Unknown]

NARRATIVE: CASE EVENT DATE: 20230317
